FAERS Safety Report 16947637 (Version 1)
Quarter: 2019Q4

REPORT INFORMATION
  Report Type: Report from Study
  Country: GB (occurrence: GB)
  Receive Date: 20191022
  Receipt Date: 20191022
  Transmission Date: 20200122
  Serious: Yes (Hospitalization, Other)
  Sender: FDA-Public Use
  Company Number: NVSC2019GB009784

PATIENT
  Age: 4 Year
  Sex: Male
  Weight: 19.9 kg

DRUGS (9)
  1. TRAMETINIB [Suspect]
     Active Substance: TRAMETINIB
     Indication: NEUROFIBROMA
     Dosage: 0.63 MG (12.6 MLS)
     Route: 048
     Dates: start: 201901
  2. GABAPENTIN. [Concomitant]
     Active Substance: GABAPENTIN
     Indication: TUMOUR PAIN
     Dosage: 150 MG, TID
     Route: 065
  3. TRAMETINIB [Suspect]
     Active Substance: TRAMETINIB
     Dosage: 0.5 MG (10 MLS) (0.025 MG/KG)
     Route: 048
     Dates: start: 20190530
  4. RANITIDINE. [Concomitant]
     Active Substance: RANITIDINE
     Indication: GASTROOESOPHAGEAL REFLUX DISEASE
     Dosage: 2 ML, TID
     Route: 065
  5. PARACETAMOL [Concomitant]
     Active Substance: ACETAMINOPHEN
     Indication: TUMOUR PAIN
     Dosage: 230 MG, QD
     Route: 065
  6. AUGMENTIN [Concomitant]
     Active Substance: AMOXICILLIN\CLAVULANATE POTASSIUM
     Indication: PRODUCT USED FOR UNKNOWN INDICATION
     Dosage: 125 MG, BID (WINTER)
     Route: 065
  7. TRAMETINIB [Suspect]
     Active Substance: TRAMETINIB
     Dosage: 0.76 MG (15.2 MLS)
     Route: 048
     Dates: start: 20190411
  8. ABIDEC [Concomitant]
     Indication: PRODUCT USED FOR UNKNOWN INDICATION
     Dosage: 0.6 ML, QD
     Route: 065
  9. LANSOPRAZOLE. [Concomitant]
     Active Substance: LANSOPRAZOLE
     Indication: GASTROOESOPHAGEAL REFLUX DISEASE
     Dosage: 50 MG, QD
     Route: 065

REACTIONS (5)
  - Proteus infection [Unknown]
  - Haematuria [Recovered/Resolved]
  - Bladder hypertrophy [Unknown]
  - Urinary tract infection [Recovered/Resolved]
  - Diarrhoea [Recovered/Resolved]

NARRATIVE: CASE EVENT DATE: 20190503
